FAERS Safety Report 9352938 (Version 2)
Quarter: 2013Q3

REPORT INFORMATION
  Report Type: Spontaneous
  Country: NZ (occurrence: NZ)
  Receive Date: 20130618
  Receipt Date: 20130705
  Transmission Date: 20140515
  Serious: Yes (Hospitalization, Other)
  Sender: FDA-Public Use
  Company Number: NZ-NOVOPROD-377754

PATIENT
  Age: 46 Year
  Sex: Male
  Weight: 108 kg

DRUGS (12)
  1. NOVOMIX 30 FLEXPEN [Suspect]
     Indication: TYPE 2 DIABETES MELLITUS
     Dosage: 20 U, BID
     Route: 058
     Dates: start: 20130412
  2. NOVOMIX 30 FLEXPEN [Suspect]
     Dosage: 25 U, BID
     Route: 065
     Dates: start: 20130419
  3. NOVOMIX 30 FLEXPEN [Suspect]
     Dosage: 450 U, SINGLE
     Dates: start: 20130502
  4. NOVOMIX 30 FLEXPEN [Suspect]
     Dosage: 20 U, BID
     Route: 065
  5. NOVOMIX 30 FLEXPEN [Suspect]
     Dosage: 34 U, BID
     Route: 065
  6. METFORMIN [Concomitant]
     Indication: TYPE 2 DIABETES MELLITUS
     Dosage: 500 MG, TID
     Route: 048
  7. CILAZAPRIL [Concomitant]
     Indication: HYPERTENSION
     Dosage: 10 MG, QD
     Route: 048
  8. TADALAFIL [Concomitant]
     Indication: ERECTILE DYSFUNCTION
     Dosage: 10 MG, PRN
     Route: 048
  9. OMEPRAZOLE [Concomitant]
     Indication: GASTROOESOPHAGEAL REFLUX DISEASE
     Dosage: 40 MG, QD
     Route: 048
  10. ATORVASTATIN [Concomitant]
     Indication: BLOOD CHOLESTEROL
     Dosage: 40 MG, QD, EVENING
     Route: 048
  11. DOXAZOSIN [Concomitant]
     Indication: HYPERTENSION
     Dosage: 2 MG, SINGLE, MORNING
     Route: 048
  12. SERTRALINE [Concomitant]
     Indication: DEPRESSION
     Dosage: 100 MG, SINGLE
     Route: 048

REACTIONS (3)
  - Suicide attempt [Recovered/Resolved]
  - Intentional overdose [Recovered/Resolved]
  - No adverse event [Unknown]
